FAERS Safety Report 25059512 (Version 3)
Quarter: 2025Q3

REPORT INFORMATION
  Report Type: Spontaneous
  Country: US (occurrence: US)
  Receive Date: 20250310
  Receipt Date: 20250814
  Transmission Date: 20251020
  Serious: Yes (Hospitalization, Other)
  Sender: GLAXOSMITHKLINE
  Company Number: US-GLAXOSMITHKLINE INC-US2025025370

PATIENT
  Sex: Female

DRUGS (1)
  1. NUCALA [Suspect]
     Active Substance: MEPOLIZUMAB
     Indication: Product used for unknown indication

REACTIONS (9)
  - Nasal polyps [Not Recovered/Not Resolved]
  - Apnoea [Unknown]
  - Nasal septal operation [Unknown]
  - Respiratory tract congestion [Unknown]
  - Multiple allergies [Unknown]
  - Headache [Unknown]
  - Confusional state [Unknown]
  - Parosmia [Unknown]
  - Taste disorder [Unknown]
